FAERS Safety Report 10268819 (Version 1)
Quarter: 2014Q2

REPORT INFORMATION
  Report Type: Spontaneous
  Country: AR (occurrence: AR)
  Receive Date: 20140630
  Receipt Date: 20140630
  Transmission Date: 20141212
  Serious: Yes (Other)
  Sender: FDA-Public Use
  Company Number: CHPA2014AR008772

PATIENT
  Sex: Female

DRUGS (1)
  1. NICOTINELL GUM [Suspect]
     Indication: SMOKING CESSATION THERAPY
     Dosage: 2 MG, FROM 6 TO 8 DAILY
     Route: 048

REACTIONS (1)
  - Drug dependence [Unknown]
